FAERS Safety Report 4508687-X (Version None)
Quarter: 2004Q4

REPORT INFORMATION
  Report Type: 
  Country: None (occurrence: None)
  Receive Date: 20041123
  Receipt Date: 20040603
  Transmission Date: 20050328
  Serious: No
  Sender: FDA-Public Use
  Company Number: US-GLAXOSMITHKLINE-A0513274A

PATIENT
  Age: 41 Year
  Sex: Male

DRUGS (7)
  1. WELLBUTRIN SR [Suspect]
     Indication: DEPRESSION
     Dosage: 200MG TWICE PER DAY
     Route: 048
  2. EFFEXOR [Concomitant]
  3. CLONAZEPAM [Concomitant]
  4. ATENOLOL [Concomitant]
  5. FLOMAX [Concomitant]
  6. MORPHINE SULFATE [Concomitant]
  7. LEVOXYL [Concomitant]

REACTIONS (2)
  - ANORGASMIA [None]
  - ERECTILE DYSFUNCTION [None]
